FAERS Safety Report 6498423-2 (Version None)
Quarter: 2009Q4

REPORT INFORMATION
  Report Type: 
  Country: None (occurrence: None)
  Receive Date: 20091127
  Receipt Date: 20090814
  Transmission Date: 20100525
  Serious: Yes (Other)
  Sender: FDA-Public Use
  Company Number: 290548

PATIENT
  Age: 52 Year
  Sex: Female
  Weight: 47.6 kg

DRUGS (6)
  1. NOVOLIN R [Suspect]
     Indication: TYPE 1 DIABETES MELLITUS
     Dosage: 4 IU, QD EVERY MORNING, SUBCUTANEOUS
     Route: 058
  2. NOVOLOG [Suspect]
     Indication: TYPE 1 DIABETES MELLITUS
     Dosage: 4 LU, QD EVERY NIGHT, SUBCUTANEOUS
     Route: 058
  3. LANTUS [Suspect]
     Indication: TYPE 1 DIABETES MELLITUS
     Dosage: 10 MG, QD EVERY MORNING, SUBCUTANEOUS
     Route: 058
  4. AMILORIDE (AMILORIDE) [Concomitant]
  5. SPIRONOLACTONE [Concomitant]
  6. POTASSIUM (POTASSIUM) [Concomitant]

REACTIONS (3)
  - ACCIDENTAL OVERDOSE [None]
  - HYPOGLYCAEMIC UNCONSCIOUSNESS [None]
  - MIGRAINE [None]
